FAERS Safety Report 9470246 (Version 1)
Quarter: 2013Q3

REPORT INFORMATION
  Report Type: Spontaneous
  Country: US (occurrence: US)
  Receive Date: 20130822
  Receipt Date: 20130822
  Transmission Date: 20140515
  Serious: No
  Sender: FDA-Public Use
  Company Number: US-SANOFI-AVENTIS-2013SA041748

PATIENT
  Age: 69 Year
  Sex: Male

DRUGS (3)
  1. MULTAQ [Suspect]
     Indication: ATRIAL FIBRILLATION
     Route: 048
     Dates: start: 2013
  2. DIFLUCAN [Interacting]
     Indication: FUNGAL INFECTION
     Route: 065
     Dates: start: 20130408, end: 20130408
  3. LISINOPRIL [Concomitant]
     Indication: HYPERTENSION
     Route: 065

REACTIONS (2)
  - Palpitations [Not Recovered/Not Resolved]
  - Drug interaction [Unknown]
